FAERS Safety Report 7002377-X (Version None)
Quarter: 2010Q3

REPORT INFORMATION
  Report Type: 
  Country: None (occurrence: None)
  Receive Date: 20100920
  Receipt Date: 20090825
  Transmission Date: 20110219
  Serious: No
  Sender: FDA-Public Use
  Company Number: US-ASTRAZENECA-2009SE09940

PATIENT
  Sex: Female

DRUGS (2)
  1. SEROQUEL [Suspect]
     Indication: SCHIZOPHRENIA
     Route: 048
     Dates: start: 19980101, end: 20040101
  2. METFORMIN [Concomitant]

REACTIONS (5)
  - DIABETES MELLITUS [None]
  - MEMORY IMPAIRMENT [None]
  - NERVOUSNESS [None]
  - SELF-INJURIOUS IDEATION [None]
  - URINARY TRACT DISORDER [None]
